FAERS Safety Report 11128893 (Version 2)
Quarter: 2015Q2

REPORT INFORMATION
  Report Type: Report from Study
  Country: DE (occurrence: DE)
  Receive Date: 20150521
  Receipt Date: 20150615
  Transmission Date: 20150821
  Serious: Yes (Hospitalization)
  Sender: FDA-Public Use
  Company Number: PHHY2015DE059428

PATIENT
  Age: 60 Year
  Sex: Female
  Weight: 78 kg

DRUGS (1)
  1. GILENYA [Suspect]
     Active Substance: FINGOLIMOD HYDROCHLORIDE
     Indication: MULTIPLE SCLEROSIS
     Dosage: 0.5 MG, QD
     Route: 048
     Dates: start: 20140611

REACTIONS (4)
  - Humerus fracture [Recovered/Resolved with Sequelae]
  - Fall [Recovered/Resolved with Sequelae]
  - Joint dislocation [Recovered/Resolved with Sequelae]
  - Radial nerve palsy [Unknown]

NARRATIVE: CASE EVENT DATE: 20141007
